FAERS Safety Report 7497645-1 (Version None)
Quarter: 2011Q2

REPORT INFORMATION
  Report Type: 
  Country: None (occurrence: None)
  Receive Date: 20110523
  Receipt Date: 20110513
  Transmission Date: 20111010
  Serious: Yes (Other)
  Sender: FDA-Public Use
  Company Number: PHHY2011TR43054

PATIENT
  Age: 43 Year
  Sex: Female

DRUGS (4)
  1. FLUOROURACIL [Suspect]
     Indication: BREAST CANCER
     Dosage: UNK UKN, UNK
  2. ADRIAMYCIN PFS [Suspect]
     Indication: BREAST CANCER
     Dosage: UNK UKN, UNK
  3. CYCLOPHOSPHAMIDE [Suspect]
     Indication: BREAST CANCER
     Dosage: UNK UKN, UNK
  4. DOCETAXEL [Suspect]
     Dosage: UNK UKN, UNK

REACTIONS (4)
  - PAIN OF SKIN [None]
  - HERPES ZOSTER [None]
  - NEUTROPENIA [None]
  - RASH ERYTHEMATOUS [None]
